FAERS Safety Report 8955471 (Version 1)
Quarter: 2012Q4

REPORT INFORMATION
  Report Type: Spontaneous
  Country: US (occurrence: None)
  Receive Date: 20121130
  Receipt Date: 20121130
  Transmission Date: 20130627
  Serious: Yes (Hospitalization)
  Sender: FDA-Public Use
  Company Number: FK201203539

PATIENT
  Age: 74 Year
  Sex: Female
  Weight: 71.5 kg

DRUGS (5)
  1. CARBOPLATIN [Suspect]
     Indication: LUNG ADENOCARCINOMA STAGE IV
     Dosage: 1 in 3 weeks
     Route: 042
     Dates: start: 20120523, end: 20120905
  2. MORAB-003 [Suspect]
     Indication: LUNG ADENOCARCINOMA STAGE IV
     Dosage: 1 in 3 weeks
     Route: 042
     Dates: start: 20120523, end: 20120905
  3. MORAB-003 [Suspect]
     Indication: LUNG ADENOCARCINOMA STAGE IV
     Dates: start: 20121012
  4. PEMETREXED [Suspect]
     Indication: LUNG ADENOCARCINOMA STAGE IV
     Dosage: 1 in 3 weeks
     Route: 042
     Dates: start: 20120523, end: 20120905
  5. WARFARIN (WARFARIN) [Concomitant]

REACTIONS (6)
  - Gastrointestinal haemorrhage [None]
  - Cerebral haemorrhage [None]
  - Blood lactic acid increased [None]
  - Diverticulum intestinal [None]
  - Haemorrhoids [None]
  - Duodenal ulcer [None]
